FAERS Safety Report 9909987 (Version 3)
Quarter: 2015Q3

REPORT INFORMATION
  Report Type: Spontaneous
  Country: US (occurrence: US)
  Receive Date: 20140219
  Receipt Date: 20150812
  Transmission Date: 20151125
  Serious: No
  Sender: FDA-Public Use
  Company Number: US-GILEAD-2012-0055213

PATIENT
  Age: 88 Year
  Sex: Male
  Weight: 83.9 kg

DRUGS (21)
  1. PEGBLEND [Concomitant]
  2. METOPROLOL TARTRATE. [Concomitant]
     Active Substance: METOPROLOL TARTRATE
  3. OMEPRAZOLE. [Concomitant]
     Active Substance: OMEPRAZOLE
  4. ASPIRIN. [Concomitant]
     Active Substance: ASPIRIN
  5. ALPHAGAN P [Concomitant]
     Active Substance: BRIMONIDINE TARTRATE
  6. LETAIRIS [Suspect]
     Active Substance: AMBRISENTAN
     Indication: PULMONARY HYPERTENSION
     Dosage: 5 MG, UNK
     Route: 048
     Dates: start: 20111125
  7. SIMVASTATIN. [Concomitant]
     Active Substance: SIMVASTATIN
  8. LOVAZA [Concomitant]
     Active Substance: OMEGA-3-ACID ETHYL ESTERS
  9. DOCUSATE SODIUM. [Concomitant]
     Active Substance: DOCUSATE SODIUM
  10. VITAMIN D2 [Concomitant]
     Active Substance: ERGOCALCIFEROL
  11. PAXIL [Concomitant]
     Active Substance: PAROXETINE HYDROCHLORIDE
  12. COLON HERBAL CLEANSER [Concomitant]
  13. METOLAZONE. [Concomitant]
     Active Substance: METOLAZONE
  14. FENOFIBRATE. [Concomitant]
     Active Substance: FENOFIBRATE
  15. KLOR-CON M10 [Concomitant]
     Active Substance: POTASSIUM CHLORIDE
  16. LETAIRIS [Suspect]
     Active Substance: AMBRISENTAN
     Dosage: 10 UNK, UNK
     Route: 048
  17. VITAMIN B12 [Concomitant]
     Active Substance: CYANOCOBALAMIN
  18. PAROXETINE HCL [Concomitant]
     Active Substance: PAROXETINE HYDROCHLORIDE
  19. REVATIO [Concomitant]
     Active Substance: SILDENAFIL CITRATE
  20. LASIX [Concomitant]
     Active Substance: FUROSEMIDE
  21. TRICOR                             /00090101/ [Concomitant]
     Active Substance: ADENOSINE

REACTIONS (1)
  - Dyspnoea [Unknown]
